FAERS Safety Report 8561886-2 (Version None)
Quarter: 2012Q3

REPORT INFORMATION
  Report Type: 
  Country: None (occurrence: None)
  Receive Date: 20120802
  Receipt Date: 20120720
  Transmission Date: 20120928
  Serious: No
  Sender: FDA-Public Use
  Company Number: US-AMGEN-USASP2012023962

PATIENT
  Age: 33 Year
  Sex: Female

DRUGS (1)
  1. ENBREL [Suspect]
     Indication: RHEUMATOID ARTHRITIS
     Dosage: 25 MG, 2 TIMES/WK
     Dates: start: 20120326, end: 20120414

REACTIONS (12)
  - VOMITING [None]
  - NAUSEA [None]
  - INJECTION SITE WARMTH [None]
  - INJECTION SITE ERYTHEMA [None]
  - BURNING SENSATION [None]
  - DIARRHOEA [None]
  - ALOPECIA [None]
  - RASH ERYTHEMATOUS [None]
  - INJECTION SITE SWELLING [None]
  - RHEUMATOID ARTHRITIS [None]
  - SINUSITIS [None]
  - DYSPNOEA [None]
